FAERS Safety Report 16349959 (Version 2)
Quarter: 2019Q2

REPORT INFORMATION
  Report Type: Report from Study
  Country: US (occurrence: US)
  Receive Date: 20190523
  Receipt Date: 20190530
  Transmission Date: 20190711
  Serious: Yes (Hospitalization)
  Sender: FDA-Public Use
  Company Number: US-ACTELION-A-NJ2019-190797

PATIENT
  Age: 52 Year
  Sex: Female

DRUGS (15)
  1. MECLIZINE [Concomitant]
     Active Substance: MECLIZINE HYDROCHLORIDE
  2. METFORMIN [Concomitant]
     Active Substance: METFORMIN HYDROCHLORIDE
     Indication: ESSENTIAL HYPERTENSION
  3. UPTRAVI [Suspect]
     Active Substance: SELEXIPAG
     Indication: PULMONARY ARTERIAL HYPERTENSION
     Dosage: 600 UNK, BID
     Route: 048
     Dates: start: 20170915
  4. LISINOPRIL. [Concomitant]
     Active Substance: LISINOPRIL
  5. OMEPRAZOLE. [Concomitant]
     Active Substance: OMEPRAZOLE
  6. PREDNISONE. [Concomitant]
     Active Substance: PREDNISONE
  7. ADCIRCA [Concomitant]
     Active Substance: TADALAFIL
  8. GABAPENTIN. [Concomitant]
     Active Substance: GABAPENTIN
  9. CYMBALTA [Concomitant]
     Active Substance: DULOXETINE HYDROCHLORIDE
     Dosage: UNK
     Dates: start: 201807
  10. MYSOLINE [Concomitant]
     Active Substance: PRIMIDONE
  11. LASIX [Concomitant]
     Active Substance: FUROSEMIDE
  12. FLUOXETINE [Concomitant]
     Active Substance: FLUOXETINE HYDROCHLORIDE
  13. SIMVASTATIN. [Concomitant]
     Active Substance: SIMVASTATIN
     Dosage: UNK
  14. OPSUMIT [Suspect]
     Active Substance: MACITENTAN
     Indication: PULMONARY ARTERIAL HYPERTENSION
     Dosage: 10 MG, QD
     Route: 048
     Dates: start: 20170621
  15. HYDROCHLOROTHIAZIDE. [Concomitant]
     Active Substance: HYDROCHLOROTHIAZIDE

REACTIONS (6)
  - Upper respiratory tract infection [Recovered/Resolved]
  - Wheezing [Recovered/Resolved]
  - Chills [Recovered/Resolved]
  - Cough [Recovered/Resolved]
  - Malaise [Recovered/Resolved]
  - Oxygen saturation decreased [Not Recovered/Not Resolved]

NARRATIVE: CASE EVENT DATE: 20190502
